FAERS Safety Report 18061115 (Version 2)
Quarter: 2020Q3

REPORT INFORMATION
  Report Type: Spontaneous
  Country: US (occurrence: US)
  Receive Date: 20200723
  Receipt Date: 20200813
  Transmission Date: 20201103
  Serious: Yes (Other)
  Sender: FDA-Public Use
  Company Number: US-KASDIRECT-2020-US-013108

PATIENT
  Age: 10 Month
  Sex: Female

DRUGS (1)
  1. SPF 50 PLUS SUNSCREEN [Suspect]
     Active Substance: OCTISALATE\TITANIUM DIOXIDE\ZINC OXIDE
     Indication: THERAPEUTIC SKIN CARE TOPICAL
     Route: 061

REACTIONS (3)
  - Feeling abnormal [Unknown]
  - Posture abnormal [Unknown]
  - Chills [Unknown]
